FAERS Safety Report 5938143-3 (Version None)
Quarter: 2008Q4

REPORT INFORMATION
  Report Type: 
  Country: None (occurrence: None)
  Receive Date: 20081031
  Receipt Date: 20081021
  Transmission Date: 20090506
  Serious: Yes (Other)
  Sender: FDA-Public Use
  Company Number: US-PFIZER INC-2008088712

PATIENT
  Sex: Female

DRUGS (4)
  1. PREDNISONE [Suspect]
     Route: 048
     Dates: start: 20060616, end: 20060621
  2. PREDNISONE [Suspect]
     Route: 048
     Dates: start: 20060622
  3. INVESTIGATIONAL DRUG [Suspect]
     Indication: IDIOPATHIC THROMBOCYTOPENIC PURPURA
     Dates: start: 20060615, end: 20060623
  4. INVESTIGATIONAL DRUG [Suspect]
     Dosage: TEXT:12MCG/KG
     Dates: start: 20060928

REACTIONS (1)
  - THROMBOCYTHAEMIA [None]
